FAERS Safety Report 11562768 (Version 1)
Quarter: 2015Q3

REPORT INFORMATION
  Report Type: Spontaneous
  Country: US (occurrence: US)
  Receive Date: 20150916
  Receipt Date: 20150916
  Transmission Date: 20151125
  Serious: No
  Sender: FDA-Public Use
  Company Number: US-ELI_LILLY_AND_COMPANY-US200812005409

PATIENT
  Age: 72 Year
  Sex: Female

DRUGS (5)
  1. ANTIHYPERTENSIVES [Concomitant]
     Active Substance: UNSPECIFIED INGREDIENT
     Indication: HYPERTENSION
  2. FLOVENT [Concomitant]
     Active Substance: FLUTICASONE PROPIONATE
  3. SEREVENT DISKUS [Concomitant]
     Active Substance: SALMETEROL XINAFOATE
  4. POTASSIUM [Concomitant]
     Active Substance: POTASSIUM
  5. FORTEO [Suspect]
     Active Substance: TERIPARATIDE
     Dosage: UNK, UNK
     Dates: start: 20081030

REACTIONS (9)
  - Neck pain [Recovering/Resolving]
  - Multiple allergies [Recovering/Resolving]
  - Pain in extremity [Recovering/Resolving]
  - Feeling hot [Not Recovered/Not Resolved]
  - Injection site bruising [Recovering/Resolving]
  - Sleep disorder [Recovering/Resolving]
  - Pain [Recovered/Resolved with Sequelae]
  - Musculoskeletal pain [Recovering/Resolving]
  - Arthralgia [Recovering/Resolving]

NARRATIVE: CASE EVENT DATE: 200811
